FAERS Safety Report 23050346 (Version 1)
Quarter: 2023Q4

REPORT INFORMATION
  Report Type: Spontaneous
  Country: US (occurrence: None)
  Receive Date: 20231009
  Receipt Date: 20231009
  Transmission Date: 20240109
  Serious: Yes (Death, Hospitalization, Other)
  Sender: FDA-Public Use
  Company Number: None

PATIENT
  Age: 44 Year
  Sex: Male
  Weight: 120.6 kg

DRUGS (5)
  1. KEYTRUDA [Suspect]
     Active Substance: PEMBROLIZUMAB
     Indication: Skin disorder
     Dates: start: 20230305, end: 20230607
  2. KEYTRUDA [Suspect]
     Active Substance: PEMBROLIZUMAB
     Indication: Malignant melanoma stage III
  3. PREDNISONE [Concomitant]
  4. VITAMINS [Concomitant]
     Active Substance: VITAMINS
  5. PROBIOTICS NOS [Concomitant]
     Active Substance: PROBIOTICS NOS

REACTIONS (8)
  - Autoimmune pancreatitis [None]
  - Rhinovirus infection [None]
  - Sepsis [None]
  - Infection in an immunocompromised host [None]
  - Respiratory distress [None]
  - Oncologic complication [None]
  - Pulmonary oedema [None]
  - Pleural effusion [None]

NARRATIVE: CASE EVENT DATE: 20230607
